FAERS Safety Report 4494132-X (Version None)
Quarter: 2004Q4

REPORT INFORMATION
  Report Type: 
  Country: None (occurrence: None)
  Receive Date: 20041105
  Receipt Date: 20040309
  Transmission Date: 20050328
  Serious: Yes (Life-Threatening, Hospitalization)
  Sender: FDA-Public Use
  Company Number: AU-MERCK-0403AUS00318

PATIENT
  Age: 69 Year
  Sex: Male

DRUGS (7)
  1. VIOXX [Suspect]
     Indication: OSTEOARTHRITIS
     Route: 048
     Dates: start: 20020301, end: 20041001
  2. VENLAFAXINE HYDROCHLORIDE [Concomitant]
     Route: 065
  3. PANTOPRAZOLE SODIUM [Concomitant]
     Route: 065
  4. ATORVASTATIN CALCIUM [Concomitant]
     Route: 065
  5. ASPIRIN AND DIPYRIDAMOLE [Concomitant]
     Route: 065
  6. METOPROLOL TARTRATE [Concomitant]
     Route: 065
  7. BICALUTAMIDE [Concomitant]
     Route: 065
     Dates: end: 20041001

REACTIONS (8)
  - ARTHRALGIA [None]
  - BACK PAIN [None]
  - CONVULSION [None]
  - FATIGUE [None]
  - NASOPHARYNGITIS [None]
  - SEPSIS [None]
  - URINARY RETENTION [None]
  - URINARY TRACT INFECTION [None]
